FAERS Safety Report 18703787 (Version 3)
Quarter: 2021Q1

REPORT INFORMATION
  Report Type: Other
  Country: FR (occurrence: FR)
  Receive Date: 20210106
  Receipt Date: 20210201
  Transmission Date: 20210419
  Serious: Yes (Death, Life-Threatening, Other)
  Sender: FDA-Public Use
  Company Number: FR-ASTELLAS-2020US046337

PATIENT
  Age: 13 Year
  Sex: Male
  Weight: 21 kg

DRUGS (1)
  1. TACROLIMUS. [Suspect]
     Active Substance: TACROLIMUS
     Indication: ORGAN TRANSPLANT
     Dosage: 7 MG, DAILY, (BY OPENING THE CAPSULES)
     Route: 060
     Dates: start: 20201026, end: 20201204

REACTIONS (4)
  - Product use issue [Unknown]
  - Thrombotic microangiopathy [Not Recovered/Not Resolved]
  - Overdose [Recovered/Resolved]
  - Wrong technique in product usage process [Unknown]

NARRATIVE: CASE EVENT DATE: 20201026
